FAERS Safety Report 24322802 (Version 2)
Quarter: 2024Q4

REPORT INFORMATION
  Report Type: Spontaneous
  Country: US (occurrence: US)
  Receive Date: 20240916
  Receipt Date: 20241105
  Transmission Date: 20250114
  Serious: Yes (Other)
  Sender: CELLTRION
  Company Number: US-CELLTRION INC.-2024US018690

PATIENT

DRUGS (1)
  1. INFLECTRA [Suspect]
     Active Substance: INFLIXIMAB-DYYB
     Indication: Crohn^s disease
     Dosage: UNK
     Route: 065

REACTIONS (9)
  - Muscle spasms [Unknown]
  - Cervical radiculopathy [Unknown]
  - Tremor [Unknown]
  - Muscle twitching [Unknown]
  - Tinnitus [Unknown]
  - Muscle contractions involuntary [Unknown]
  - Night sweats [Unknown]
  - Butterfly rash [Unknown]
  - Somnolence [Unknown]
